FAERS Safety Report 20562273 (Version 1)
Quarter: 2022Q1

REPORT INFORMATION
  Report Type: Spontaneous
  Country: ID (occurrence: ID)
  Receive Date: 20220307
  Receipt Date: 20220307
  Transmission Date: 20220423
  Serious: Yes (Other)
  Sender: FDA-Public Use
  Company Number: ID-BAUSCH-BL-2022-005720

PATIENT
  Age: 15 Year
  Sex: Male
  Weight: 54 kg

DRUGS (4)
  1. DEXAMETHASONE [Suspect]
     Active Substance: DEXAMETHASONE
     Indication: Product used for unknown indication
     Dosage: LOADING DOSE
     Route: 065
     Dates: start: 202009
  2. DEXAMETHASONE [Suspect]
     Active Substance: DEXAMETHASONE
     Dosage: MAINTENANCE DOSE
     Route: 065
     Dates: start: 202009
  3. REMDESIVIR [Concomitant]
     Active Substance: REMDESIVIR
     Indication: Antiviral treatment
     Dates: start: 202106
  4. AMIODARONE [Concomitant]
     Active Substance: AMIODARONE
     Indication: Ventricular tachycardia
     Dosage: MAINTENANCE DOSE
     Dates: start: 202106

REACTIONS (1)
  - Gastrointestinal haemorrhage [Not Recovered/Not Resolved]

NARRATIVE: CASE EVENT DATE: 20210601
